FAERS Safety Report 17822949 (Version 1)
Quarter: 2020Q2

REPORT INFORMATION
  Report Type: Spontaneous
  Country: US (occurrence: US)
  Receive Date: 20200522
  Receipt Date: 20200522
  Transmission Date: 20200714
  Serious: Yes (Other)
  Sender: FDA-Public Use
  Company Number: None

PATIENT
  Age: 39 Year
  Sex: Male

DRUGS (1)
  1. FLUOXETINE [Suspect]
     Active Substance: FLUOXETINE HYDROCHLORIDE
     Route: 048
     Dates: start: 20200212, end: 20200412

REACTIONS (5)
  - Vomiting [None]
  - Product substitution issue [None]
  - Serotonin syndrome [None]
  - Nausea [None]
  - Product physical issue [None]

NARRATIVE: CASE EVENT DATE: 20200212
